FAERS Safety Report 16324075 (Version 2)
Quarter: 2019Q2

REPORT INFORMATION
  Report Type: Spontaneous
  Country: US (occurrence: US)
  Receive Date: 20190517
  Receipt Date: 20190605
  Transmission Date: 20190711
  Serious: No
  Sender: FDA-Public Use
  Company Number: US-ASTRAZENECA-2019SE61635

PATIENT
  Age: 18685 Day
  Sex: Female
  Weight: 111.1 kg

DRUGS (2)
  1. ASPRIN [Concomitant]
     Active Substance: ASPIRIN
     Indication: GENE MUTATION
  2. BYDUREON BCISE [Suspect]
     Active Substance: EXENATIDE
     Indication: TYPE 2 DIABETES MELLITUS
     Route: 058
     Dates: start: 2018

REACTIONS (6)
  - Needle issue [Unknown]
  - Injection site haemorrhage [Recovered/Resolved]
  - Device malfunction [Unknown]
  - Injection site extravasation [Unknown]
  - Device leakage [Unknown]
  - Injection site pain [Recovered/Resolved]

NARRATIVE: CASE EVENT DATE: 20190406
